FAERS Safety Report 4659027-7 (Version None)
Quarter: 2005Q2

REPORT INFORMATION
  Report Type: 
  Country: None (occurrence: None)
  Receive Date: 20050511
  Receipt Date: 20050428
  Transmission Date: 20051028
  Serious: No
  Sender: FDA-Public Use
  Company Number: ZA-GLAXOSMITHKLINE-B0379971A

PATIENT
  Sex: Male

DRUGS (3)
  1. ZYBAN [Suspect]
     Indication: EX-SMOKER
     Dosage: 150MG TWICE PER DAY
     Route: 065
     Dates: start: 20050101, end: 20050401
  2. INSULIN [Concomitant]
     Indication: DIABETES MELLITUS
     Route: 065
  3. ATORVASTATIN CALCIUM [Concomitant]
     Indication: DIABETES MELLITUS
     Route: 065

REACTIONS (2)
  - PALPITATIONS [None]
  - VISION BLURRED [None]
